FAERS Safety Report 8474113-1 (Version None)
Quarter: 2012Q2

REPORT INFORMATION
  Report Type: 
  Country: None (occurrence: None)
  Receive Date: 20120628
  Receipt Date: 20120625
  Transmission Date: 20120825
  Serious: No
  Sender: FDA-Public Use
  Company Number: US-PFIZER INC-2012153447

PATIENT
  Sex: Female

DRUGS (8)
  1. LYRICA [Suspect]
     Indication: PAIN
     Dosage: UNK
  2. CODEINE SULFATE [Suspect]
     Indication: PAIN
     Dosage: UNK
  3. DARVOCET-N 50 [Suspect]
     Indication: PAIN
     Dosage: UNK
  4. PROVIGIL [Suspect]
     Indication: PAIN
     Dosage: UNK
  5. CYMBALTA [Suspect]
     Indication: PAIN
     Dosage: UNK
  6. CELEBREX [Suspect]
     Indication: PAIN
     Dosage: UNK
  7. ULTRAM [Suspect]
     Indication: PAIN
     Dosage: UNK
  8. AMBIEN [Suspect]
     Indication: PAIN
     Dosage: UNK

REACTIONS (11)
  - DRUG INEFFECTIVE [None]
  - MYOFASCIAL PAIN SYNDROME [None]
  - FATIGUE [None]
  - MIGRAINE [None]
  - PAIN [None]
  - OSTEOARTHRITIS [None]
  - CARPAL TUNNEL SYNDROME [None]
  - INTERVERTEBRAL DISC DEGENERATION [None]
  - TEMPOROMANDIBULAR JOINT SYNDROME [None]
  - SPINAL DISORDER [None]
  - NEUROPATHY PERIPHERAL [None]
